FAERS Safety Report 6263679-8 (Version None)
Quarter: 2009Q3

REPORT INFORMATION
  Report Type: 
  Country: None (occurrence: None)
  Receive Date: 20090708
  Receipt Date: 20090708
  Transmission Date: 20100115
  Serious: Yes (Disabling, Other)
  Sender: FDA-Public Use
  Company Number: None

PATIENT
  Age: 39 Year
  Sex: Female
  Weight: 79.3795 kg

DRUGS (2)
  1. ZICAM ALLERGY RELIEF [Suspect]
     Indication: MULTIPLE ALLERGIES
     Dosage: 1 3XS A WEEK NASAL
     Route: 045
     Dates: start: 20081201, end: 20090625
  2. ZICAM COLD REMEDY [Suspect]
     Indication: NASOPHARYNGITIS
     Dosage: 1-2 XS DAILY NASAL
     Route: 045
     Dates: start: 20090101, end: 20090625

REACTIONS (2)
  - AGEUSIA [None]
  - ANOSMIA [None]
